FAERS Safety Report 16749686 (Version 2)
Quarter: 2019Q3

REPORT INFORMATION
  Report Type: Spontaneous
  Country: AU (occurrence: AU)
  Receive Date: 20190828
  Receipt Date: 20190904
  Transmission Date: 20191005
  Serious: Yes (Hospitalization, Other)
  Sender: FDA-Public Use
  Company Number: AU-MYLANLABS-2019M1078409

PATIENT
  Age: 58 Year
  Sex: Male

DRUGS (11)
  1. CLOZARIL [Suspect]
     Active Substance: CLOZAPINE
     Indication: SCHIZOPHRENIA
     Dosage: 250 MILLIGRAM, MANE
     Route: 048
     Dates: start: 19931104, end: 201708
  2. CLOZARIL [Suspect]
     Active Substance: CLOZAPINE
     Dosage: 150 MILLIGRAM, NOCTE
     Route: 048
     Dates: start: 19931104, end: 201708
  3. TAMSULOSIN [Concomitant]
     Active Substance: TAMSULOSIN
     Dosage: 400 MICROGRAM, AM
  4. BISOPROLOL [Concomitant]
     Active Substance: BISOPROLOL
     Dosage: 2.5 MILLIGRAM, AM
  5. RAMIPRIL. [Concomitant]
     Active Substance: RAMIPRIL
     Dosage: 10 MILLIGRAM, AM
  6. CLOZARIL [Suspect]
     Active Substance: CLOZAPINE
     Dosage: 150 MILLIGRAM, MIDDI
     Route: 048
     Dates: start: 19931104, end: 201708
  7. THIAMINE. [Concomitant]
     Active Substance: THIAMINE
     Dosage: 100 MILLIGRAM, QD
  8. PALIPERIDONE. [Suspect]
     Active Substance: PALIPERIDONE
     Indication: PRODUCT USED FOR UNKNOWN INDICATION
     Dosage: UNK
  9. PALIPERIDONE. [Suspect]
     Active Substance: PALIPERIDONE
     Dosage: 12 MILLIGRAM
  10. OLANZAPINE. [Suspect]
     Active Substance: OLANZAPINE
     Indication: PRODUCT USED FOR UNKNOWN INDICATION
     Dosage: 2.5 MILLIGRAM, BID
  11. MULTIVITAMIN                       /00097801/ [Concomitant]
     Active Substance: VITAMINS
     Dosage: UNK, QD

REACTIONS (11)
  - Myocarditis [Unknown]
  - Schizophrenia [Not Recovered/Not Resolved]
  - Haemoglobin decreased [Unknown]
  - Syncope [Unknown]
  - Orthostatic hypotension [Unknown]
  - Haematocrit decreased [Unknown]
  - Left ventricular dysfunction [Unknown]
  - Catatonia [Not Recovered/Not Resolved]
  - Serum ferritin increased [Unknown]
  - Ejection fraction decreased [Recovered/Resolved]
  - Electrocardiogram QT prolonged [Unknown]

NARRATIVE: CASE EVENT DATE: 201708
